FAERS Safety Report 14040539 (Version 2)
Quarter: 2017Q4

REPORT INFORMATION
  Report Type: Spontaneous
  Country: JP (occurrence: JP)
  Receive Date: 20171004
  Receipt Date: 20171019
  Transmission Date: 20180321
  Serious: Yes (Other)
  Sender: FDA-Public Use
  Company Number: JP-BAXTER-2017BAX032093

PATIENT
  Age: 7 Year
  Sex: Female
  Weight: 26.2 kg

DRUGS (4)
  1. PROPOFOL. [Concomitant]
     Active Substance: PROPOFOL
     Route: 065
     Dates: start: 201603
  2. SUPRANE [Suspect]
     Active Substance: DESFLURANE
     Indication: GENERAL ANAESTHESIA
     Dosage: 1.0 MAC (8.0%) 15 MIN
     Route: 055
     Dates: start: 201603, end: 201603
  3. REMIFENTANIL [Concomitant]
     Active Substance: REMIFENTANIL
     Indication: INDUCTION OF ANAESTHESIA
     Dosage: 0.1 G/KG/MIN
     Route: 041
     Dates: start: 201603, end: 201603
  4. PROPOFOL. [Concomitant]
     Active Substance: PROPOFOL
     Indication: INDUCTION OF ANAESTHESIA
     Dosage: 100 G/KG/MIN
     Route: 041
     Dates: start: 201603, end: 201603

REACTIONS (1)
  - Electrocardiogram change [Recovered/Resolved]

NARRATIVE: CASE EVENT DATE: 201603
